FAERS Safety Report 7717117-6 (Version None)
Quarter: 2011Q3

REPORT INFORMATION
  Report Type: 
  Country: None (occurrence: None)
  Receive Date: 20110830
  Receipt Date: 20110819
  Transmission Date: 20111222
  Serious: Yes (Hospitalization)
  Sender: FDA-Public Use
  Company Number: TW-PAR PHARMACEUTICAL, INC-2011SCPR003190

PATIENT

DRUGS (2)
  1. DEXAMETHASONE [Suspect]
     Indication: BRONCHOPULMONARY DYSPLASIA
     Dosage: UNK, UNKNOWN
     Route: 065
  2. FUROSEMIDE [Suspect]
     Indication: BRONCHOPULMONARY DYSPLASIA
     Dosage: UNK, UNKNOWN
     Route: 065

REACTIONS (1)
  - NEPHROCALCINOSIS [None]
